FAERS Safety Report 7653660-6 (Version None)
Quarter: 2011Q3

REPORT INFORMATION
  Report Type: 
  Country: None (occurrence: None)
  Receive Date: 20110803
  Receipt Date: 20110729
  Transmission Date: 20111222
  Serious: Yes (Other)
  Sender: FDA-Public Use
  Company Number: US-PFIZER INC-2011151894

PATIENT
  Sex: Female
  Weight: 86.2 kg

DRUGS (2)
  1. DILANTIN [Suspect]
     Indication: CONVULSION
     Dosage: 100 MG, 2X/DAY
     Route: 048
     Dates: start: 20071108
  2. DILANTIN [Suspect]
     Dosage: 200 MG, 2X/DAY
     Route: 048
     Dates: start: 19710101

REACTIONS (5)
  - HYPERTENSION [None]
  - DYSPHAGIA [None]
  - ARTERIAL OCCLUSIVE DISEASE [None]
  - DEMENTIA ALZHEIMER'S TYPE [None]
  - BLOOD CHOLESTEROL INCREASED [None]
